FAERS Safety Report 10815494 (Version 1)
Quarter: 2015Q1

REPORT INFORMATION
  Report Type: Report from Study
  Country: US (occurrence: US)
  Receive Date: 20150218
  Receipt Date: 20150218
  Transmission Date: 20150721
  Serious: No
  Sender: FDA-Public Use
  Company Number: US-ABBVIE-14K-163-1285018-00

PATIENT
  Age: 31 Year
  Sex: Female

DRUGS (4)
  1. OTC ALLERGY PILL [Concomitant]
     Indication: SEASONAL ALLERGY
     Dosage: OCCASIONALLY
  2. HUMIRA [Suspect]
     Active Substance: ADALIMUMAB
     Indication: CROHN^S DISEASE
     Dates: start: 20140624
  3. MULTIVITAMINUM [Concomitant]
     Indication: PRODUCT USED FOR UNKNOWN INDICATION
  4. LOESTRIN NOS [Concomitant]
     Active Substance: ETHINYL ESTRADIOL\NORETHINDRONE ACETATE
     Indication: PRODUCT USED FOR UNKNOWN INDICATION
     Dosage: BIRTH CONTROL

REACTIONS (1)
  - Injection site haemorrhage [Recovered/Resolved]

NARRATIVE: CASE EVENT DATE: 20140902
